FAERS Safety Report 9305927 (Version 1)
Quarter: 2013Q2

REPORT INFORMATION
  Report Type: Spontaneous
  Country: JP (occurrence: JP)
  Receive Date: 20130523
  Receipt Date: 20130523
  Transmission Date: 20140414
  Serious: Yes (Hospitalization, Other)
  Sender: FDA-Public Use
  Company Number: JP-PFIZER INC-2013117984

PATIENT
  Age: 45 Year
  Sex: Female
  Weight: 58.6 kg

DRUGS (9)
  1. JZOLOFT [Suspect]
     Indication: DEPRESSION
     Dosage: 50 MG, 1X/DAY
     Route: 048
     Dates: start: 20130225, end: 20130227
  2. JZOLOFT [Suspect]
     Dosage: 75 MG, 1X/DAY
     Route: 048
     Dates: start: 20130228, end: 20130318
  3. JZOLOFT [Suspect]
     Dosage: 50 MG, 1X/DAY
     Route: 048
     Dates: start: 20130319, end: 20130322
  4. JZOLOFT [Suspect]
     Dosage: 25 MG, 1X/DAY
     Route: 048
     Dates: start: 20130323, end: 20130325
  5. DESYREL [Suspect]
     Indication: DEPRESSION
     Dosage: 50 MG, 1X/DAY
     Route: 048
     Dates: start: 20121227, end: 20130329
  6. LEUPLIN [Concomitant]
     Indication: BREAST CANCER
     Dosage: 3.75 MG, FREQUENCY UNKNOWN
     Route: 058
     Dates: start: 20130204
  7. MYSLEE [Concomitant]
     Indication: INSOMNIA
     Dosage: 10 MG, 1X/DAY
     Route: 048
     Dates: start: 20121227
  8. CONSTAN [Concomitant]
     Indication: DEPRESSION
     Dosage: 0.4 MG, 2X/DAY
     Route: 048
     Dates: start: 20130228
  9. FARESTON [Concomitant]
     Indication: BREAST CANCER
     Dosage: 40 MG, 1X/DAY
     Route: 048
     Dates: start: 20130128

REACTIONS (7)
  - Serotonin syndrome [Recovered/Resolved]
  - Mental impairment [Unknown]
  - Anxiety [Not Recovered/Not Resolved]
  - Memory impairment [Unknown]
  - Insomnia [Recovering/Resolving]
  - Headache [Unknown]
  - Drug ineffective [Unknown]
